FAERS Safety Report 12329719 (Version 3)
Quarter: 2016Q3

REPORT INFORMATION
  Report Type: Spontaneous
  Country: IT (occurrence: IT)
  Receive Date: 20160503
  Receipt Date: 20160720
  Transmission Date: 20161109
  Serious: Yes (Hospitalization, Other)
  Sender: FDA-Public Use
  Company Number: IT-GILEAD-2016-0210212

PATIENT
  Age: 66 Year
  Sex: Female

DRUGS (8)
  1. LETROZOLE TEVA [Concomitant]
     Active Substance: LETROZOLE
  2. ZYDELIG [Suspect]
     Active Substance: IDELALISIB
     Indication: CHRONIC LYMPHOCYTIC LEUKAEMIA
     Dosage: 150 MG, BID
     Route: 048
     Dates: start: 20151228, end: 20160415
  3. BACTRIM [Concomitant]
     Active Substance: SULFAMETHOXAZOLE\TRIMETHOPRIM
  4. ACICLIN [Concomitant]
     Active Substance: ACYCLOVIR
  5. ZEFFIX [Concomitant]
     Active Substance: LAMIVUDINE
  6. ZYDELIG [Suspect]
     Active Substance: IDELALISIB
     Dosage: 100 MG, BID
     Route: 048
     Dates: start: 20160606
  7. PANTORC [Concomitant]
     Active Substance: PANTOPRAZOLE SODIUM
  8. PRELECTAL [Concomitant]

REACTIONS (4)
  - Rash papular [Recovered/Resolved]
  - Staphylococcal infection [Recovered/Resolved]
  - Folliculitis [Unknown]
  - Hyperthermia [Recovered/Resolved]

NARRATIVE: CASE EVENT DATE: 201604
